FAERS Safety Report 5503538-9 (Version None)
Quarter: 2007Q4

REPORT INFORMATION
  Report Type: 
  Country: None (occurrence: None)
  Receive Date: 20071029
  Receipt Date: 20071018
  Transmission Date: 20080405
  Serious: Yes (Hospitalization)
  Sender: FDA-Public Use
  Company Number: 2007AL004418

PATIENT
  Age: 67 Year
  Sex: Female

DRUGS (1)
  1. DICLOFENAC, DICLOFENAC SODIUM DELAYED-RELEASE TABLETS, 50 MG (PUREPAC) [Suspect]
     Indication: OSTEOARTHRITIS
     Dosage: 50 MG; QD

REACTIONS (1)
  - COLON CANCER [None]
